FAERS Safety Report 8883351 (Version 1)
Quarter: 2012Q4

REPORT INFORMATION
  Report Type: 
  Country: US (occurrence: US)
  Receive Date: 20121102
  Receipt Date: 20121102
  Transmission Date: 20130627
  Serious: Yes (Other)
  Sender: FDA-Public Use
  Company Number: US-BAYER-2012-114900

PATIENT
  Sex: Female

DRUGS (4)
  1. BAYER ASPIRIN REGIMEN ADULT LOW STRENGTH [Suspect]
     Route: 048
  2. BAYER CHEWABLE LOW DOSE BABY ASPIRIN TABLET ORANGE [Suspect]
     Route: 048
  3. BAYER GENUINE ASPIRIN ORIGINAL STRENGTH [Suspect]
     Route: 048
  4. BAYER WOMEN^S LOW STRENGTH ASPIRIN REGIMEN [Concomitant]
     Route: 048

REACTIONS (1)
  - Gastric disorder [None]
